FAERS Safety Report 6289785-X (Version None)
Quarter: 2009Q3

REPORT INFORMATION
  Report Type: 
  Country: None (occurrence: None)
  Receive Date: 20090730
  Receipt Date: 20080922
  Transmission Date: 20100115
  Serious: Yes (Hospitalization)
  Sender: FDA-Public Use
  Company Number: US-BRISTOL-MYERS SQUIBB COMPANY-14278030

PATIENT
  Age: 81 Year
  Sex: Female
  Weight: 82 kg

DRUGS (12)
  1. COUMADIN [Suspect]
     Dates: start: 20000101
  2. WARFARIN SODIUM [Suspect]
  3. PRANDIN [Concomitant]
  4. LASIX [Concomitant]
  5. DIGOXIN [Concomitant]
  6. BENAZEPRIL HCL + HCTZ [Concomitant]
  7. METFORMIN HCL [Concomitant]
  8. SYNTHROID [Concomitant]
  9. LANTUS [Concomitant]
  10. IRON TABLETS [Concomitant]
  11. SPIRONOLACTONE [Concomitant]
  12. INSULIN [Concomitant]
     Dosage: 1 DF=20-27UNITS

REACTIONS (3)
  - MYALGIA [None]
  - OESOPHAGEAL ULCER [None]
  - ULCER HAEMORRHAGE [None]
